FAERS Safety Report 24241314 (Version 2)
Quarter: 2024Q3

REPORT INFORMATION
  Report Type: Spontaneous
  Country: AU (occurrence: AU)
  Receive Date: 20240823
  Receipt Date: 20240906
  Transmission Date: 20241016
  Serious: Yes (Hospitalization)
  Sender: RECORDATI
  Company Number: AU-RECORDATI RARE DISEASE INC.-2024006319

PATIENT

DRUGS (1)
  1. ISTURISA [Suspect]
     Active Substance: OSILODROSTAT PHOSPHATE
     Indication: Pituitary-dependent Cushing^s syndrome
     Dosage: 2 MG, BID
     Dates: start: 20240627, end: 20240703

REACTIONS (6)
  - Acute kidney injury [Recovered/Resolved]
  - Staphylococcal bacteraemia [Recovered/Resolved]
  - Electrolyte imbalance [Recovered/Resolved]
  - Viral diarrhoea [Recovered/Resolved]
  - Liver function test abnormal [Recovered/Resolved]
  - Influenza like illness [Unknown]

NARRATIVE: CASE EVENT DATE: 20240101
